FAERS Safety Report 12368398 (Version 1)
Quarter: 2016Q2

REPORT INFORMATION
  Report Type: Report from Study
  Country: US (occurrence: US)
  Receive Date: 20160513
  Receipt Date: 20160513
  Transmission Date: 20160815
  Serious: Yes (Other)
  Sender: FDA-Public Use
  Company Number: US-UCBSA-2016017063

PATIENT
  Age: 31 Year
  Sex: Male

DRUGS (21)
  1. LEVETIRACETAM. [Suspect]
     Active Substance: LEVETIRACETAM
     Dosage: 500 MG 5 TAB DAILY
     Route: 048
     Dates: start: 2011
  2. LEVETIRACETAM. [Suspect]
     Active Substance: LEVETIRACETAM
     Dosage: 3000 MG, ONCE DAILY (QD)
     Route: 048
  3. VIMPAT [Suspect]
     Active Substance: LACOSAMIDE
     Indication: SEIZURE
     Dosage: 100 MG, 2X/DAY (BID)
     Route: 048
     Dates: start: 201208, end: 2013
  4. TOPAMAX [Concomitant]
     Active Substance: TOPIRAMATE
     Dosage: 250 MG (150 MG AM ANF 100 MG IN PM), 2X/DAY (BID)
     Route: 048
  5. LEVETIRACETAM. [Suspect]
     Active Substance: LEVETIRACETAM
     Indication: SEIZURE
     Dosage: 500 MG 2 TAB DAILY
     Route: 048
     Dates: start: 2010, end: 2011
  6. LEVETIRACETAM. [Suspect]
     Active Substance: LEVETIRACETAM
     Dosage: 500 MG 5 TAB DAILY
     Route: 048
     Dates: start: 2011, end: 2011
  7. ZOLOFT [Concomitant]
     Active Substance: SERTRALINE HYDROCHLORIDE
     Indication: PRODUCT USED FOR UNKNOWN INDICATION
     Dosage: 100 MG, DAILY
  8. AMBIEN [Concomitant]
     Active Substance: ZOLPIDEM TARTRATE
     Indication: PRODUCT USED FOR UNKNOWN INDICATION
     Dosage: 10 MG, ONCE DAILY (QD) BEDTIME
  9. LEVETIRACETAM. [Suspect]
     Active Substance: LEVETIRACETAM
     Dosage: 500 MG 4 TABS DAILY
     Route: 048
     Dates: start: 2011, end: 2011
  10. GABAPENTIN. [Concomitant]
     Active Substance: GABAPENTIN
     Indication: PRODUCT USED FOR UNKNOWN INDICATION
     Dosage: 1200 MG, 3X/DAY (TID)
  11. NEURONTIN [Concomitant]
     Active Substance: GABAPENTIN
     Indication: PRODUCT USED FOR UNKNOWN INDICATION
     Dosage: UNK
     Dates: end: 201204
  12. LEVETIRACETAM. [Suspect]
     Active Substance: LEVETIRACETAM
     Dosage: 2000 MG, ONCE DAILY (QD)
     Route: 048
     Dates: start: 2011, end: 2011
  13. TIZANIDINE. [Concomitant]
     Active Substance: TIZANIDINE
     Indication: PRODUCT USED FOR UNKNOWN INDICATION
     Dosage: 4 MG, 4X/DAY (QID)
  14. FLONASE [Concomitant]
     Active Substance: FLUTICASONE PROPIONATE
     Indication: PRODUCT USED FOR UNKNOWN INDICATION
     Dosage: UNK, 2X/DAY (BID)
  15. POTASSIUM [Concomitant]
     Active Substance: POTASSIUM
     Indication: SUPPLEMENTATION THERAPY
     Dosage: DAILY
  16. VIMPAT [Suspect]
     Active Substance: LACOSAMIDE
     Dosage: 150 MG, 2X/DAY (BID)
     Route: 048
     Dates: start: 2013, end: 2013
  17. TOPAMAX [Concomitant]
     Active Substance: TOPIRAMATE
     Dosage: 200 MG, 2X/DAY (BID)
     Route: 048
     Dates: start: 2015
  18. TOPAMAX [Concomitant]
     Active Substance: TOPIRAMATE
     Dosage: 150 MG, 2X/DAY (BID)
     Route: 048
     Dates: start: 2015
  19. VIMPAT [Suspect]
     Active Substance: LACOSAMIDE
     Dosage: 200 MG, 2X/DAY (BID)
     Route: 048
     Dates: start: 201309
  20. OMEPRAZOLE. [Concomitant]
     Active Substance: OMEPRAZOLE
     Indication: PRODUCT USED FOR UNKNOWN INDICATION
     Dosage: 20 MG, DAILY
  21. TOPAMAX [Concomitant]
     Active Substance: TOPIRAMATE
     Indication: PRODUCT USED FOR UNKNOWN INDICATION
     Dosage: 100 MG, 2X/DAY (BID)
     Route: 048
     Dates: start: 201408

REACTIONS (33)
  - Loss of consciousness [Unknown]
  - Diarrhoea [Unknown]
  - Pain [Unknown]
  - Syncope [Unknown]
  - Sensitivity of teeth [Unknown]
  - Seasonal allergy [Unknown]
  - Blindness [Unknown]
  - Diplopia [Unknown]
  - Dyspepsia [Unknown]
  - Dizziness [Unknown]
  - Pain in extremity [Unknown]
  - Headache [Unknown]
  - Joint swelling [Unknown]
  - Neck pain [Unknown]
  - Hypoaesthesia [Unknown]
  - Paraesthesia [Unknown]
  - Constipation [Unknown]
  - Musculoskeletal stiffness [Unknown]
  - Arthralgia [Unknown]
  - Anxiety [Unknown]
  - Asthenia [Unknown]
  - Night sweats [Unknown]
  - Sexual dysfunction [Unknown]
  - Back pain [Unknown]
  - Skin discolouration [Unknown]
  - Fall [Unknown]
  - Peripheral swelling [Unknown]
  - Nausea [Unknown]
  - Muscular weakness [Unknown]
  - Amnesia [Unknown]
  - Depression [Unknown]
  - Seizure [Unknown]
  - Pyrexia [Unknown]

NARRATIVE: CASE EVENT DATE: 20110904
